FAERS Safety Report 25289923 (Version 2)
Quarter: 2025Q2

REPORT INFORMATION
  Report Type: Other
  Country: US (occurrence: US)
  Receive Date: 20250509
  Receipt Date: 20250618
  Transmission Date: 20250717
  Serious: Yes (Other)
  Sender: MADRIGAL PHARMACEUTICALS
  Company Number: US-MADRIGAL PHARMACEUTICALS, INC-2025REZ4625

PATIENT

DRUGS (8)
  1. REZDIFFRA [Suspect]
     Active Substance: RESMETIROM
     Indication: Hepatic steatosis
     Dosage: 100 MILLIGRAM, QD
     Route: 048
     Dates: start: 20250401, end: 20250411
  2. CLONAZEPAM [Concomitant]
     Active Substance: CLONAZEPAM
  3. CLONIDINE [Concomitant]
     Active Substance: CLONIDINE
  4. DIAZEPAM [Concomitant]
     Active Substance: DIAZEPAM
  5. FLUVOXAMINE [Concomitant]
     Active Substance: FLUVOXAMINE
  6. GABAPENTIN [Concomitant]
     Active Substance: GABAPENTIN
  7. METFORMIN [Concomitant]
     Active Substance: METFORMIN HYDROCHLORIDE
  8. ROSUVASTATIN [Concomitant]
     Active Substance: ROSUVASTATIN

REACTIONS (8)
  - Alanine aminotransferase increased [Unknown]
  - Aspartate aminotransferase increased [Unknown]
  - Blood alkaline phosphatase increased [Unknown]
  - Pyrexia [Recovered/Resolved]
  - Abdominal pain upper [Recovered/Resolved]
  - Vomiting [Recovered/Resolved]
  - Decreased appetite [Recovered/Resolved]
  - Pruritus [Recovered/Resolved]

NARRATIVE: CASE EVENT DATE: 20250401
